FAERS Safety Report 5197223-3 (Version None)
Quarter: 2006Q4

REPORT INFORMATION
  Report Type: 
  Country: None (occurrence: None)
  Receive Date: 20061227
  Receipt Date: 20061213
  Transmission Date: 20070319
  Serious: Yes (Other)
  Sender: FDA-Public Use
  Company Number: 2006129473

PATIENT
  Age: 45 Year
  Sex: Female

DRUGS (5)
  1. DEPO-PROVERA [Suspect]
     Indication: MENSTRUAL DISCOMFORT
     Dosage: SEE IMAGE
     Dates: start: 20060510, end: 20060510
  2. DEPO-PROVERA [Suspect]
     Indication: MENSTRUAL DISCOMFORT
     Dosage: SEE IMAGE
     Dates: start: 20060910, end: 20060910
  3. DEPO-PROVERA [Suspect]
     Indication: MENSTRUAL DISCOMFORT
     Dosage: SEE IMAGE
     Dates: start: 20061010, end: 20061010
  4. DEPO-PROVERA [Suspect]
     Indication: MENSTRUAL DISCOMFORT
     Dosage: SEE IMAGE
     Dates: start: 20061016, end: 20061016
  5. DEPO-PROVERA [Suspect]
     Indication: MENSTRUAL DISCOMFORT
     Dosage: SEE IMAGE
     Dates: start: 20061117, end: 20061117

REACTIONS (6)
  - ABDOMINAL DISTENSION [None]
  - DRUG INEFFECTIVE [None]
  - INCORRECT DRUG ADMINISTRATION DURATION [None]
  - PAIN IN EXTREMITY [None]
  - UTERINE LEIOMYOMA [None]
  - WEIGHT INCREASED [None]
